FAERS Safety Report 5829132-8 (Version None)
Quarter: 2008Q2

REPORT INFORMATION
  Report Type: 
  Country: None (occurrence: None)
  Receive Date: 20080601
  Receipt Date: 20080207
  Transmission Date: 20081010
  Serious: No
  Sender: FDA-Public Use
  Company Number: US200802001734

PATIENT
  Age: 26 Year
  Sex: Female
  Weight: 147.4 kg

DRUGS (3)
  1. BYETTA [Suspect]
     Indication: BLOOD INSULIN INCREASED
     Dosage: 5 UG, EACH EVENING, SUBCUTANEOUS ; 5 UG, 2/D, SUBCUTANEOUS
     Route: 058
     Dates: start: 20080129, end: 20080131
  2. BYETTA [Suspect]
     Indication: BLOOD INSULIN INCREASED
     Dosage: 5 UG, EACH EVENING, SUBCUTANEOUS ; 5 UG, 2/D, SUBCUTANEOUS
     Route: 058
     Dates: start: 20080201
  3. METFORMIN HCL [Concomitant]

REACTIONS (3)
  - FEELING ABNORMAL [None]
  - FEELING JITTERY [None]
  - NAUSEA [None]
